FAERS Safety Report 15736443 (Version 1)
Quarter: 2018Q4

REPORT INFORMATION
  Report Type: Spontaneous
  Country: IL (occurrence: IL)
  Receive Date: 20181218
  Receipt Date: 20181218
  Transmission Date: 20190205
  Serious: Yes (Other)
  Sender: FDA-Public Use
  Company Number: IL-SA-2018SA340558

PATIENT
  Age: 84 Year
  Sex: Male

DRUGS (3)
  1. AMARYL [Suspect]
     Active Substance: GLIMEPIRIDE
  2. SITAGLIPTIN METFORMIN [Suspect]
     Active Substance: METFORMIN HYDROCHLORIDE\SITAGLIPTIN PHOSPHATE
  3. AMLODIPINE [Suspect]
     Active Substance: AMLODIPINE BESYLATE

REACTIONS (2)
  - Dermatitis [Unknown]
  - Pruritus generalised [Unknown]
